FAERS Safety Report 20188656 (Version 3)
Quarter: 2022Q3

REPORT INFORMATION
  Report Type: Spontaneous
  Country: FR (occurrence: FR)
  Receive Date: 20211215
  Receipt Date: 20220808
  Transmission Date: 20221027
  Serious: Yes (Death, Life-Threatening, Hospitalization, Other)
  Sender: FDA-Public Use
  Company Number: None

PATIENT

DRUGS (4)
  1. BUPRENORPHINE [Suspect]
     Active Substance: BUPRENORPHINE
     Indication: Product used for unknown indication
     Dosage: 12 MILLIGRAM, QD
     Route: 060
     Dates: start: 2014, end: 2018
  2. BUPRENORPHINE [Suspect]
     Active Substance: BUPRENORPHINE
     Dosage: 16 MILLIGRAM, QD
     Route: 042
     Dates: start: 2018
  3. SUBUTEX [Suspect]
     Active Substance: BUPRENORPHINE HYDROCHLORIDE
     Indication: Product used for unknown indication
     Dosage: 14 MILLIGRAM, QD
     Route: 042
     Dates: start: 202103, end: 20210529
  4. TOBACCO LEAF [Suspect]
     Active Substance: TOBACCO LEAF
     Indication: Product used for unknown indication
     Dosage: 16 YEAR PACKAGES
     Route: 055

REACTIONS (17)
  - Off label use [Fatal]
  - Multiple organ dysfunction syndrome [Fatal]
  - Endocarditis [Fatal]
  - Cardiac failure [Fatal]
  - Injection site ulcer [Fatal]
  - Drug abuse [Fatal]
  - Septic shock [Recovered/Resolved]
  - Pulmonary embolism [Recovered/Resolved]
  - Cardiac valve abscess [Recovered/Resolved]
  - Endocarditis staphylococcal [Recovered/Resolved]
  - Tricuspid valve disease [Recovered/Resolved]
  - Splenic infarction [Recovering/Resolving]
  - Renal infarct [Recovering/Resolving]
  - Malnutrition [Recovering/Resolving]
  - Tricuspid valve replacement [Recovered/Resolved]
  - Pneumonia [Recovering/Resolving]
  - Administration site abscess sterile [Recovered/Resolved]

NARRATIVE: CASE EVENT DATE: 20180101
